FAERS Safety Report 5574306-7 (Version None)
Quarter: 2007Q4

REPORT INFORMATION
  Report Type: 
  Country: None (occurrence: None)
  Receive Date: 20071221
  Receipt Date: 20071206
  Transmission Date: 20080405
  Serious: Yes (Hospitalization)
  Sender: FDA-Public Use
  Company Number: US021963

PATIENT
  Age: 50 Year
  Sex: Female

DRUGS (8)
  1. ACTIQ [Suspect]
     Indication: PAIN
     Dosage: 1200 UG TID BUCCAL
     Route: 002
     Dates: start: 20021201
  2. ACTIQ [Suspect]
     Indication: PAIN
     Dosage: DOSE TAPERED DOWNBUCCAL
     Route: 002
  3. OXYCONTIN [Suspect]
     Indication: PAIN
     Dosage: 80 MG DOSE TAPERED DOWN TID ORAL
     Route: 048
  4. OXYCONTIN [Suspect]
     Indication: PAIN
     Dosage: 20 MG BID ORAL
     Route: 048
  5. MORPHINE [Concomitant]
  6. INDERAL /000300001/ [Concomitant]
  7. KEFLEX /00145501/ [Concomitant]
  8. DILAUDID [Concomitant]

REACTIONS (17)
  - ABDOMINAL PAIN [None]
  - AGITATION [None]
  - DEHYDRATION [None]
  - DELIRIUM [None]
  - DEVICE FAILURE [None]
  - DRUG ADMINISTRATION ERROR [None]
  - DRUG WITHDRAWAL CONVULSIONS [None]
  - DRUG WITHDRAWAL SYNDROME [None]
  - HAEMODYNAMIC INSTABILITY [None]
  - HEADACHE [None]
  - HYPOKALAEMIA [None]
  - INADEQUATE ANALGESIA [None]
  - MENTAL STATUS CHANGES [None]
  - NAUSEA [None]
  - OVERDOSE [None]
  - TACHYARRHYTHMIA [None]
  - VOMITING [None]
